FAERS Safety Report 23578740 (Version 1)
Quarter: 2024Q1

REPORT INFORMATION
  Report Type: Other
  Country: JP (occurrence: None)
  Receive Date: 20240229
  Receipt Date: 20240229
  Transmission Date: 20240409
  Serious: Yes (Hospitalization)
  Sender: FDA-Public Use
  Company Number: JP-Encube-000603

PATIENT
  Age: 60 Year
  Sex: Male

DRUGS (11)
  1. TACROLIMUS [Suspect]
     Active Substance: TACROLIMUS
     Indication: Interstitial lung disease
     Dosage: CAPSULE
  2. ALFACALCIDOL [Concomitant]
     Active Substance: ALFACALCIDOL
     Indication: Osteoporosis
     Dosage: CAPSULE
  3. SULFAMETHOXAZOLE\TRIMETHOPRIM [Concomitant]
     Active Substance: SULFAMETHOXAZOLE\TRIMETHOPRIM
     Indication: Pneumocystis jirovecii pneumonia
     Dosage: 80 MG/400 MG, ONCE A DAY, THREE DAYS A WEEK
  4. CANAGLIFLOZIN [Concomitant]
     Active Substance: CANAGLIFLOZIN
     Indication: Type 2 diabetes mellitus
  5. PREDNISOLONE [Concomitant]
     Active Substance: PREDNISOLONE
  6. SEMAGLUTIDE [Concomitant]
     Active Substance: SEMAGLUTIDE
  7. NIFEDIPINE [Concomitant]
     Active Substance: NIFEDIPINE
     Dosage: CONTROLLED-RELEASE TABLET
  8. MINODRONIC ACID [Concomitant]
     Active Substance: MINODRONIC ACID
  9. ZOPICLONE [Concomitant]
     Active Substance: ZOPICLONE
     Dosage: UPON WAKING
  10. TACROLIMUS [Suspect]
     Active Substance: TACROLIMUS
     Indication: Interstitial lung disease
     Dosage: CAPSULE
  11. NIFEDIPINE [Concomitant]
     Active Substance: NIFEDIPINE
     Dosage: CONTROLLED-RELEASE TABLET

REACTIONS (7)
  - Acute kidney injury [Recovered/Resolved]
  - Prinzmetal angina [Recovered/Resolved]
  - Atrioventricular block complete [Recovered/Resolved]
  - Ventricular tachycardia [Recovered/Resolved]
  - Toxicity to various agents [Recovered/Resolved]
  - Drug interaction [Unknown]
  - Off label use [Unknown]
